FAERS Safety Report 23346885 (Version 3)
Quarter: 2024Q4

REPORT INFORMATION
  Report Type: Spontaneous
  Country: US (occurrence: US)
  Receive Date: 20231228
  Receipt Date: 20241007
  Transmission Date: 20250114
  Serious: No
  Sender: SANOFI AVENTIS
  Company Number: US-SA-SAC20231222000314

PATIENT
  Age: 53 Year
  Sex: Male

DRUGS (1)
  1. REZUROCK [Suspect]
     Active Substance: BELUMOSUDIL
     Indication: Graft versus host disease
     Dosage: 200 MG, QD
     Route: 048
     Dates: start: 20220707

REACTIONS (3)
  - Dizziness [Unknown]
  - Joint effusion [Unknown]
  - Influenza [Unknown]

NARRATIVE: CASE EVENT DATE: 20240909
